FAERS Safety Report 6819735-6 (Version None)
Quarter: 2010Q3

REPORT INFORMATION
  Report Type: 
  Country: None (occurrence: None)
  Receive Date: 20100707
  Receipt Date: 20100622
  Transmission Date: 20110219
  Serious: Yes (Other)
  Sender: FDA-Public Use
  Company Number: US-JNJFOC-20100500687

PATIENT
  Sex: Male

DRUGS (5)
  1. CHILDREN'S MOTRIN [Suspect]
     Indication: PYREXIA
     Route: 048
  2. CHILDREN'S MOTRIN [Suspect]
     Indication: MALAISE
     Route: 048
  3. CHILDREN'S TYLENOL SUSPENSION [Suspect]
     Route: 048
  4. CHILDREN'S TYLENOL SUSPENSION [Suspect]
     Indication: PYREXIA
     Route: 048
  5. CHILDREN'S ZYRTEC ALLERGY [Suspect]
     Indication: RHINORRHOEA
     Route: 048

REACTIONS (3)
  - PRODUCT QUALITY ISSUE [None]
  - PYREXIA [None]
  - RASH [None]
